FAERS Safety Report 8582936-3 (Version None)
Quarter: 2012Q2

REPORT INFORMATION
  Report Type: 
  Country: None (occurrence: None)
  Receive Date: 20120423
  Receipt Date: 20080403
  Transmission Date: 20120825
  Serious: Yes (Death)
  Sender: FDA-Public Use
  Company Number: PHEH2008US03388

PATIENT
  Age: 95 Year
  Sex: Female

DRUGS (1)
  1. FORADIL [Suspect]
     Indication: LUNG DISORDER
     Dosage: INHALATION
     Route: 055

REACTIONS (1)
  - DISEASE PROGRESSION [None]
